FAERS Safety Report 9250536 (Version 1)
Quarter: 2013Q1

REPORT INFORMATION
  Report Type: Spontaneous
  Country: US (occurrence: None)
  Receive Date: 20130305
  Receipt Date: 20130305
  Transmission Date: 20140127
  Serious: Yes (Hospitalization, Disabling)
  Sender: FDA-Public Use
  Company Number: 163-21880-12042724

PATIENT
  Age: 77 Year
  Sex: Male
  Weight: 70.31 kg

DRUGS (26)
  1. REVLIMID [Suspect]
     Indication: PLASMA CELL MYELOMA
     Route: 048
     Dates: start: 20120326, end: 20120430
  2. LEVOTHYROXINE (LEVOTHYROXINE) (TABLETS) [Concomitant]
  3. SYNTHROID (LEVOTHYROXINE SODIUM) [Concomitant]
  4. ARICEPT (DONEPEZIL HYDROCHLORIDE) (TABLETS) [Concomitant]
  5. WARFARIN (WARFARIN) (TABLETS) [Concomitant]
  6. IRON (IRON) [Concomitant]
  7. VITAMIN D3 (COLECALCIFEROL) [Concomitant]
  8. VITAMINS [Concomitant]
  9. VITAMIN C [Concomitant]
  10. VITAMIN B12 (CYANOCOBALAMIN) [Concomitant]
  11. FISH OIL (FISH OIL) [Concomitant]
  12. DEXAMETHASONE (DEXAMETHASONE) [Concomitant]
  13. ZOMETA (ZOLEDRONIC ACID) [Concomitant]
  14. FERROUS (FERROUS SULFATE) [Concomitant]
  15. SENNOSIDES (SENNOSIDE A+B) [Concomitant]
  16. ACETAMINOPHEN (PARACETAMOL) [Concomitant]
  17. CALCIUM CITRATE (CALCIUM CITRATE) [Concomitant]
  18. CETIRIZINE (CETIRIZINE) [Concomitant]
  19. DOCUSATE SODIUM (DOCUSATE SODIUM) [Concomitant]
  20. FLONASE (FLUTICASONE PROPIONATE) [Concomitant]
  21. GLUCOSAMINE/CHONDROITIN/MANGANESE (CHONDROITIN SODIUM SULFATE W/GLUCOSAMINE HCL) [Concomitant]
  22. HYDROCORTISONE (HYDROCORTISONE) [Concomitant]
  23. MIRTAZAPINE (MIRTAZAPINE) [Concomitant]
  24. PRILOSEC [Concomitant]
  25. OXYCODONE (OXYCODONE) [Concomitant]
  26. MIRALAX [Concomitant]

REACTIONS (4)
  - Cellulitis [None]
  - Rash [None]
  - Rash erythematous [None]
  - Diarrhoea [None]
